FAERS Safety Report 5201244-1 (Version None)
Quarter: 2007Q1

REPORT INFORMATION
  Report Type: 
  Country: None (occurrence: None)
  Receive Date: 20070108
  Receipt Date: 20070103
  Transmission Date: 20070707
  Serious: Yes (Other)
  Sender: FDA-Public Use
  Company Number: GB-BRISTOL-MYERS SQUIBB COMPANY-13595632

PATIENT
  Age: 17 Year
  Sex: Male

DRUGS (2)
  1. ABILIFY [Suspect]
     Indication: PSYCHOTIC DISORDER
     Dates: start: 20060701, end: 20060901
  2. CANNABIS [Interacting]

REACTIONS (2)
  - DRUG INTERACTION [None]
  - HOMICIDE [None]
